FAERS Safety Report 14014478 (Version 1)
Quarter: 2017Q3

REPORT INFORMATION
  Report Type: Spontaneous
  Country: TR (occurrence: TR)
  Receive Date: 20170927
  Receipt Date: 20170927
  Transmission Date: 20171128
  Serious: Yes (Death, Hospitalization, Other)
  Sender: FDA-Public Use
  Company Number: TR-ALEMBIC PHARMACUETICALS LIMITED-2017SCAL000768

PATIENT

DRUGS (1)
  1. VENLAFAXINE HYDROCHLORIDE. [Suspect]
     Active Substance: VENLAFAXINE HYDROCHLORIDE
     Indication: PRODUCT USED FOR UNKNOWN INDICATION
     Dosage: UNK
     Route: 064

REACTIONS (14)
  - Congenital musculoskeletal anomaly [Unknown]
  - Patent ductus arteriosus [Unknown]
  - Oesophageal atresia [Unknown]
  - Low birth weight baby [Unknown]
  - Foetal growth restriction [Unknown]
  - Adactyly [Unknown]
  - Anal atresia [Unknown]
  - Pericardial effusion [Unknown]
  - Female genital tract fistula [Unknown]
  - Foetal exposure during pregnancy [Unknown]
  - Cardio-respiratory arrest [Fatal]
  - VACTERL syndrome [Unknown]
  - Ventricular enlargement [Unknown]
  - Tracheo-oesophageal fistula [Unknown]
